FAERS Safety Report 16720650 (Version 1)
Quarter: 2019Q3

REPORT INFORMATION
  Report Type: Spontaneous
  Country: US (occurrence: US)
  Receive Date: 20190820
  Receipt Date: 20190820
  Transmission Date: 20191005
  Serious: No
  Sender: FDA-Public Use
  Company Number: UY-BIOGEN-2016BI00335161

PATIENT
  Sex: Female

DRUGS (1)
  1. PLEGRIDY [Suspect]
     Active Substance: PEGINTERFERON BETA-1A
     Indication: MULTIPLE SCLEROSIS
     Route: 065
     Dates: start: 20161221, end: 20161222

REACTIONS (23)
  - Diarrhoea [Unknown]
  - Dizziness [Unknown]
  - Feeling abnormal [Unknown]
  - Muscle disorder [Unknown]
  - Hyperhidrosis [Unknown]
  - Headache [Unknown]
  - Asthenia [Unknown]
  - Vomiting [Unknown]
  - Loss of consciousness [Unknown]
  - Memory impairment [Unknown]
  - Burning sensation [Unknown]
  - Nausea [Unknown]
  - Feeling hot [Unknown]
  - Drug intolerance [Unknown]
  - Thirst [Unknown]
  - Malaise [Unknown]
  - Palpitations [Unknown]
  - Balance disorder [Unknown]
  - Multiple sclerosis [Unknown]
  - Confusional state [Unknown]
  - Cardiac disorder [Unknown]
  - Chills [Unknown]
  - Myalgia [Unknown]
